FAERS Safety Report 25131088 (Version 1)
Quarter: 2025Q1

REPORT INFORMATION
  Report Type: Other
  Country: CN (occurrence: CN)
  Receive Date: 20250327
  Receipt Date: 20250327
  Transmission Date: 20250409
  Serious: Yes (Hospitalization, Other)
  Sender: PL DEVELOPMENTS
  Company Number: CN-P+L Developments of Newyork Corporation-2173757

PATIENT
  Age: 7 Year
  Sex: Female
  Weight: 28 kg

DRUGS (3)
  1. NAPROXEN [Suspect]
     Active Substance: NAPROXEN
     Indication: Respiratory tract infection
  2. PRANOPROFEN [Suspect]
     Active Substance: PRANOPROFEN
  3. SPIRAMYCIN [Concomitant]
     Active Substance: SPIRAMYCIN

REACTIONS (2)
  - Toxic epidermal necrolysis [Recovered/Resolved]
  - Cross sensitivity reaction [Unknown]
